FAERS Safety Report 24540324 (Version 3)
Quarter: 2024Q4

REPORT INFORMATION
  Report Type: Spontaneous
  Country: JP (occurrence: JP)
  Receive Date: 20241023
  Receipt Date: 20241218
  Transmission Date: 20250114
  Serious: Yes (Other)
  Sender: ALEXION PHARMACEUTICALS
  Company Number: JP-ASTRAZENECA-240106371_013120_P_1

PATIENT
  Age: 77 Year

DRUGS (20)
  1. IMFINZI [Suspect]
     Active Substance: DURVALUMAB
     Indication: Small cell lung cancer
     Dosage: 1500 MILLIGRAM, Q3W
  2. IMFINZI [Suspect]
     Active Substance: DURVALUMAB
     Dosage: 1500 MILLIGRAM, Q3W
     Route: 041
  3. IMFINZI [Suspect]
     Active Substance: DURVALUMAB
     Dosage: 1500 MILLIGRAM, Q3W
  4. IMFINZI [Suspect]
     Active Substance: DURVALUMAB
     Dosage: 1500 MILLIGRAM, Q3W
     Route: 041
  5. IMFINZI [Suspect]
     Active Substance: DURVALUMAB
     Dosage: 1500 MILLIGRAM, Q3W
  6. IMFINZI [Suspect]
     Active Substance: DURVALUMAB
     Dosage: 1500 MILLIGRAM, Q3W
     Route: 041
  7. IMFINZI [Suspect]
     Active Substance: DURVALUMAB
     Dosage: 1500 MILLIGRAM, Q3W
  8. IMFINZI [Suspect]
     Active Substance: DURVALUMAB
     Dosage: 1500 MILLIGRAM, Q3W
     Route: 041
  9. NAFAMOSTAT MESYLATE [Suspect]
     Active Substance: NAFAMOSTAT MESYLATE
     Indication: Pancreatitis
     Dosage: DOSE UNKNOWN
     Route: 065
  10. NAFAMOSTAT MESYLATE [Suspect]
     Active Substance: NAFAMOSTAT MESYLATE
     Dosage: DOSE UNKNOWN
     Route: 065
  11. ETOPOSIDE [Concomitant]
     Active Substance: ETOPOSIDE
     Indication: Small cell lung cancer
     Dosage: ON DAYS 1, 2, AND 3 OF EACH COURSE, DOSE UNKNOWN
     Route: 065
  12. ETOPOSIDE [Concomitant]
     Active Substance: ETOPOSIDE
     Dosage: ON DAYS 1, 2, AND 3 OF EACH COURSE, DOSE UNKNOWN
     Route: 065
  13. ETOPOSIDE [Concomitant]
     Active Substance: ETOPOSIDE
     Dosage: ON DAYS 1, 2, AND 3 OF EACH COURSE, DOSE UNKNOWN
     Route: 065
  14. ETOPOSIDE [Concomitant]
     Active Substance: ETOPOSIDE
     Dosage: ON DAYS 1, 2, AND 3 OF EACH COURSE, DOSE UNKNOWN
     Route: 065
  15. ETOPOSIDE [Concomitant]
     Active Substance: ETOPOSIDE
     Dosage: ON DAYS 1, 2, AND 3 OF EACH COURSE, DOSE UNKNOWN
     Route: 065
  16. ETOPOSIDE [Concomitant]
     Active Substance: ETOPOSIDE
     Dosage: ON DAYS 1, 2, AND 3 OF EACH COURSE, DOSE UNKNOWN
     Route: 065
  17. ETOPOSIDE [Concomitant]
     Active Substance: ETOPOSIDE
     Dosage: ON DAYS 1, 2, AND 3 OF EACH COURSE, DOSE UNKNOWN
     Route: 065
  18. ETOPOSIDE [Concomitant]
     Active Substance: ETOPOSIDE
     Dosage: ON DAYS 1, 2, AND 3 OF EACH COURSE, DOSE UNKNOWN
     Route: 065
  19. Anti-tumor necrosis factor monoclonal antibody [Concomitant]
     Indication: Small cell lung cancer
     Dosage: DOSE UNKNOWN
     Route: 065
  20. Anti-tumor necrosis factor monoclonal antibody [Concomitant]
     Dosage: DOSE UNKNOWN
     Route: 065

REACTIONS (3)
  - Hepatic steatosis [Unknown]
  - Aspartate aminotransferase increased [Unknown]
  - Platelet count decreased [Not Recovered/Not Resolved]
